FAERS Safety Report 16734692 (Version 1)
Quarter: 2019Q3

REPORT INFORMATION
  Report Type: Spontaneous
  Country: US (occurrence: US)
  Receive Date: 20190708
  Receipt Date: 20190708
  Transmission Date: 20191005
  Serious: Yes (Hospitalization)
  Sender: FDA-Public Use
  Company Number: None

PATIENT
  Age: 55 Year
  Sex: Female

DRUGS (18)
  1. TACROLIMUS. [Concomitant]
     Active Substance: TACROLIMUS
  2. MICROLET LANCETS [Concomitant]
  3. ASPIRIN. [Concomitant]
     Active Substance: ASPIRIN
  4. URSODIOL. [Suspect]
     Active Substance: URSODIOL
     Indication: ENZYME LEVEL ABNORMAL
     Route: 048
     Dates: start: 20190121
  5. SIROLIMUS. [Concomitant]
     Active Substance: SIROLIMUS
  6. ESCITALOPRAM [Concomitant]
     Active Substance: ESCITALOPRAM OXALATE
  7. FISH OIL [Concomitant]
     Active Substance: FISH OIL
  8. ADMELOG [Concomitant]
     Active Substance: INSULIN LISPRO
  9. MELATONIN [Concomitant]
     Active Substance: MELATONIN
  10. N-13 [Concomitant]
  11. INSULIN SYRINGES [Concomitant]
     Active Substance: DEVICE
  12. MAGNESIUM OXIDE. [Concomitant]
     Active Substance: MAGNESIUM OXIDE
  13. AMLODIPINE [Concomitant]
     Active Substance: AMLODIPINE BESYLATE
  14. WARFARIN [Concomitant]
     Active Substance: WARFARIN
  15. CONTOUR [Concomitant]
  16. MULTI-VITAMIN [Concomitant]
     Active Substance: .ALPHA.-TOCOPHEROL ACETATE, DL-\ASCORBIC ACID\CYANOCOBALAMIN\FLUORIDE ION\FOLIC ACID\NIACIN\PYRIDOXINE\RIBOFLAVIN\THIAMINE\VITAMIN A\VITAMIN D
  17. ATORVASTATIN [Concomitant]
     Active Substance: ATORVASTATIN
  18. CICLOPRIX SOL [Concomitant]

REACTIONS (1)
  - Transplant rejection [None]

NARRATIVE: CASE EVENT DATE: 20190614
